FAERS Safety Report 11263813 (Version 1)
Quarter: 2015Q3

REPORT INFORMATION
  Report Type: Spontaneous
  Country: US (occurrence: US)
  Receive Date: 20150713
  Receipt Date: 20150713
  Transmission Date: 20151125
  Serious: Yes (Other)
  Sender: FDA-Public Use
  Company Number: US-JNJFOC-20150618998

PATIENT
  Age: 64 Year
  Sex: Male

DRUGS (9)
  1. INVOKANA [Suspect]
     Active Substance: CANAGLIFLOZIN
     Indication: TYPE 2 DIABETES MELLITUS
     Route: 048
     Dates: start: 201503, end: 2015
  2. CELEBREX [Concomitant]
     Active Substance: CELECOXIB
  3. SINGULAIR [Concomitant]
     Active Substance: MONTELUKAST SODIUM
  4. PRILOSEC [Concomitant]
     Active Substance: OMEPRAZOLE MAGNESIUM
  5. CYMBALTA [Concomitant]
     Active Substance: DULOXETINE HYDROCHLORIDE
  6. ZOFRAN [Concomitant]
     Active Substance: ONDANSETRON HYDROCHLORIDE
  7. ADVAIR HFA [Concomitant]
     Active Substance: FLUTICASONE PROPIONATE\SALMETEROL XINAFOATE
  8. LYRICA [Concomitant]
     Active Substance: PREGABALIN
  9. TANZEUM [Concomitant]
     Active Substance: ALBIGLUTIDE
     Indication: TYPE 2 DIABETES MELLITUS

REACTIONS (1)
  - Balanoposthitis [Recovered/Resolved]

NARRATIVE: CASE EVENT DATE: 2015
